FAERS Safety Report 9054261 (Version 1)
Quarter: 2013Q1

REPORT INFORMATION
  Report Type: Spontaneous
  Country: JP (occurrence: JP)
  Receive Date: 20130208
  Receipt Date: 20130208
  Transmission Date: 20140127
  Serious: Yes (Other)
  Sender: FDA-Public Use
  Company Number: JP-GLAXOSMITHKLINE-B0860873A

PATIENT
  Age: 78 Year
  Sex: Female

DRUGS (3)
  1. ZANTAC [Suspect]
     Indication: PRODUCT USED FOR UNKNOWN INDICATION
     Route: 042
  2. DEXAMETHASONE ACETATE [Suspect]
     Route: 042
  3. CHLORPHENIRAMINE MALEATE [Suspect]
     Route: 042

REACTIONS (9)
  - Anaphylactic shock [Unknown]
  - Depressed level of consciousness [Unknown]
  - Flushing [Unknown]
  - Ocular hyperaemia [Unknown]
  - Nausea [Unknown]
  - Dyspnoea [Unknown]
  - Oxygen saturation decreased [Unknown]
  - Blood pressure decreased [Unknown]
  - Generalised erythema [Unknown]
